FAERS Safety Report 18124494 (Version 4)
Quarter: 2023Q1

REPORT INFORMATION
  Report Type: Spontaneous
  Country: US (occurrence: US)
  Receive Date: 20200807
  Receipt Date: 20230308
  Transmission Date: 20230417
  Serious: Yes (Other)
  Sender: FDA-Public Use
  Company Number: US-PFIZER INC-2020299196

PATIENT
  Age: 79 Year
  Sex: Male

DRUGS (3)
  1. XELJANZ XR [Suspect]
     Active Substance: TOFACITINIB CITRATE
     Indication: Rheumatoid arthritis
     Dosage: 11 MG
     Dates: start: 20190107
  2. XELJANZ XR [Suspect]
     Active Substance: TOFACITINIB CITRATE
     Dosage: 11 MG
     Dates: start: 20190109
  3. XELJANZ XR [Suspect]
     Active Substance: TOFACITINIB CITRATE
     Dosage: 11 MG, 1X/DAY
     Route: 048
     Dates: start: 2019

REACTIONS (11)
  - Skin cancer [Unknown]
  - Contusion [Unknown]
  - Diarrhoea [Unknown]
  - Pigmentation disorder [Unknown]
  - Skin discolouration [Unknown]
  - Sciatica [Unknown]
  - Therapeutic product effect incomplete [Unknown]
  - Sensitivity to weather change [Unknown]
  - Arthralgia [Unknown]
  - Mobility decreased [Unknown]
  - Gait disturbance [Unknown]

NARRATIVE: CASE EVENT DATE: 20220101
